FAERS Safety Report 6023602-8 (Version None)
Quarter: 2008Q4

REPORT INFORMATION
  Report Type: 
  Country: None (occurrence: None)
  Receive Date: 20081226
  Receipt Date: 20081226
  Transmission Date: 20090506
  Serious: Yes (Other)
  Sender: FDA-Public Use
  Company Number: None

PATIENT
  Age: 47 Year
  Sex: Male
  Weight: 95.709 kg

DRUGS (2)
  1. SIMVASTATIN [Suspect]
     Indication: BLOOD CHOLESTEROL
     Dosage: 10-80 MG DAILY PO
     Route: 048
     Dates: start: 20070601, end: 20070701
  2. VYTORIN [Suspect]
     Indication: BLOOD CHOLESTEROL
     Dosage: 10-80 MG DAILY PO
     Route: 048
     Dates: start: 20071001, end: 20081001

REACTIONS (6)
  - COGNITIVE DISORDER [None]
  - GAIT DISTURBANCE [None]
  - MEMORY IMPAIRMENT [None]
  - MUSCLE INJURY [None]
  - PAIN IN EXTREMITY [None]
  - TREMOR [None]
